FAERS Safety Report 21549357 (Version 3)
Quarter: 2022Q4

REPORT INFORMATION
  Report Type: Spontaneous
  Country: US (occurrence: US)
  Receive Date: 20221103
  Receipt Date: 20221123
  Transmission Date: 20230113
  Serious: No
  Sender: FDA-Public Use
  Company Number: US-PFIZER INC-202201271333

PATIENT
  Sex: Female

DRUGS (1)
  1. LEVOXYL [Suspect]
     Active Substance: LEVOTHYROXINE SODIUM
     Indication: Thyroid disorder
     Dosage: UNK

REACTIONS (15)
  - Sinusitis [Unknown]
  - Headache [Unknown]
  - Cough [Unknown]
  - Ear discomfort [Unknown]
  - Sputum abnormal [Unknown]
  - Sputum discoloured [Unknown]
  - Rhinorrhoea [Unknown]
  - Head discomfort [Unknown]
  - Facial pain [Unknown]
  - Oropharyngeal pain [Unknown]
  - Eye infection [Unknown]
  - Tinnitus [Unknown]
  - Ear congestion [Unknown]
  - Chest discomfort [Unknown]
  - Malaise [Unknown]

NARRATIVE: CASE EVENT DATE: 20221024
